FAERS Safety Report 8319986 (Version 4)
Quarter: 2013Q2

REPORT INFORMATION
  Report Type: Spontaneous
  Country: FR (occurrence: FR)
  Receive Date: 20120103
  Receipt Date: 20130426
  Transmission Date: 20140414
  Serious: Yes (Hospitalization)
  Sender: FDA-Public Use
  Company Number: FR-ROCHE-1004295

PATIENT
  Age: 64 Year
  Sex: Female

DRUGS (13)
  1. MABTHERA [Suspect]
     Indication: RHEUMATOID ARTHRITIS
     Dosage: DOSE: 1 DF
     Route: 042
     Dates: start: 20080827, end: 20110504
  2. ACTONEL [Concomitant]
     Indication: OSTEOPOROSIS
     Route: 048
     Dates: start: 201109, end: 201111
  3. ACTONEL [Concomitant]
     Route: 048
  4. OXYCONTIN [Concomitant]
     Dosage: 10MG IN MORNING, 15 MG IN TEH EVENING
     Route: 048
  5. LYRICA [Concomitant]
     Dosage: 100 MG IN MORNING, 125 MG IN EVENING
     Route: 048
  6. SEROPLEX [Concomitant]
     Dosage: DOSE: 5 MG
     Route: 048
  7. ALDALIX [Concomitant]
     Route: 065
  8. EUPANTOL [Concomitant]
     Route: 065
  9. CACIT [Concomitant]
     Route: 065
     Dates: start: 201109, end: 201111
  10. ALPRAZOLAM [Concomitant]
     Route: 065
  11. ALLOPURINOL [Concomitant]
     Route: 065
  12. ZYLORIC [Concomitant]
     Route: 065
  13. STILNOX [Concomitant]

REACTIONS (6)
  - Sarcoidosis [Recovering/Resolving]
  - Dermatitis psoriasiform [Recovered/Resolved]
  - Skin lesion [Not Recovered/Not Resolved]
  - Eczema [Not Recovered/Not Resolved]
  - Pruritus [Not Recovered/Not Resolved]
  - Cutaneous sarcoidosis [Not Recovered/Not Resolved]
